FAERS Safety Report 18920976 (Version 1)
Quarter: 2021Q1

REPORT INFORMATION
  Report Type: Spontaneous
  Country: IE (occurrence: IE)
  Receive Date: 20210222
  Receipt Date: 20210222
  Transmission Date: 20210420
  Serious: Yes (Death)
  Sender: FDA-Public Use
  Company Number: IE-ROCHE-2774733

PATIENT
  Sex: Female

DRUGS (1)
  1. TECENTRIQ [Suspect]
     Active Substance: ATEZOLIZUMAB
     Indication: PRODUCT USED FOR UNKNOWN INDICATION
     Dosage: SUBSEQUENT DOSE OF ATEZOLIZUMAB ON 28/AUG/2020, 11/SEP/2020 AND 23/OCT/2020.
     Route: 065
     Dates: start: 20200814

REACTIONS (1)
  - Death [Fatal]
